FAERS Safety Report 5234910-2 (Version None)
Quarter: 2007Q1

REPORT INFORMATION
  Report Type: 
  Country: None (occurrence: None)
  Receive Date: 20070209
  Receipt Date: 20070130
  Transmission Date: 20070707
  Serious: Yes (Other)
  Sender: FDA-Public Use
  Company Number: FRWYE021103JAN07

PATIENT
  Age: 60 Year
  Sex: Male

DRUGS (3)
  1. ENBREL [Suspect]
     Indication: PSORIASIS
     Route: 058
     Dates: start: 20030101, end: 20070101
  2. CORTANCYL [Concomitant]
     Dosage: UNKNOWN
     Dates: end: 20060101
  3. CORTANCYL [Concomitant]
     Dosage: UNKNOWN DOSE SUPERIOR TO THE PREVIOUS ONE
     Dates: start: 20060101

REACTIONS (1)
  - CUTANEOUS SARCOIDOSIS [None]
